FAERS Safety Report 12624490 (Version 3)
Quarter: 2016Q4

REPORT INFORMATION
  Report Type: Report from Study
  Country: GR (occurrence: GR)
  Receive Date: 20160805
  Receipt Date: 20161012
  Transmission Date: 20170207
  Serious: Yes (Death)
  Sender: FDA-Public Use
  Company Number: GR-ROCHE-1552793

PATIENT
  Age: 79 Year
  Sex: Female
  Weight: 65 kg

DRUGS (6)
  1. LAPRAZOL [Concomitant]
     Active Substance: LANSOPRAZOLE
     Route: 048
  2. RITUXIMAB [Suspect]
     Active Substance: RITUXIMAB
     Indication: NON-HODGKIN^S LYMPHOMA
     Dosage: MOST RECENT DOSE ON 07/OCT/2013
     Route: 042
     Dates: start: 20131007
  3. ALLOPURINOL. [Concomitant]
     Active Substance: ALLOPURINOL
     Route: 048
  4. VINCRISTINE SULFATE. [Suspect]
     Active Substance: VINCRISTINE SULFATE
     Indication: PRODUCT USED FOR UNKNOWN INDICATION
     Dosage: MOST RECENT DOSE ON 07/OCT/2013
     Route: 042
     Dates: start: 20130520
  5. CYCLOPHOSPHAMIDE. [Suspect]
     Active Substance: CYCLOPHOSPHAMIDE
     Indication: CHEMOTHERAPY
     Dosage: MOST RECENT DOSE ON 07/OCT/2013
     Route: 042
     Dates: start: 20130520
  6. METHYLPREDNISOLONE. [Suspect]
     Active Substance: METHYLPREDNISOLONE
     Indication: CHEMOTHERAPY
     Dosage: MOST RECENT DOSE ON 07/OCT/2013
     Route: 042
     Dates: start: 20130520

REACTIONS (6)
  - Anaemia [Recovering/Resolving]
  - Dizziness [Unknown]
  - Leukopenia [Fatal]
  - Asthenia [Unknown]
  - Neutropenia [Fatal]
  - Memory impairment [Unknown]

NARRATIVE: CASE EVENT DATE: 20131029
